FAERS Safety Report 5772897-4 (Version None)
Quarter: 2008Q2

REPORT INFORMATION
  Report Type: 
  Country: None (occurrence: None)
  Receive Date: 20080610
  Receipt Date: 20080529
  Transmission Date: 20081010
  Serious: Yes (Hospitalization)
  Sender: FDA-Public Use
  Company Number: 2007BI020249

PATIENT
  Age: 42 Year
  Sex: Female
  Weight: 120.2032 kg

DRUGS (1)
  1. AVONEX [Suspect]
     Indication: MULTIPLE SCLEROSIS
     Dosage: 30 UG;QW;IM
     Route: 030
     Dates: start: 20020301

REACTIONS (5)
  - BLOOD IRON DECREASED [None]
  - INJECTION SITE INFECTION [None]
  - OEDEMA PERIPHERAL [None]
  - PYREXIA [None]
  - VAGINAL HAEMORRHAGE [None]
